FAERS Safety Report 6928954-X (Version None)
Quarter: 2010Q3

REPORT INFORMATION
  Report Type: 
  Country: None (occurrence: None)
  Receive Date: 20100817
  Receipt Date: 20100805
  Transmission Date: 20110219
  Serious: Yes (Other)
  Sender: FDA-Public Use
  Company Number: US-PFIZER INC-2010069681

PATIENT
  Sex: Female
  Weight: 93 kg

DRUGS (5)
  1. SUTENT [Suspect]
     Indication: METASTATIC RENAL CELL CARCINOMA
     Dosage: 25 MG, 1X/DAY, 4 WEEKS ON AND 2 WEEKS OFF
     Route: 048
     Dates: start: 20100601
  2. SUTENT [Suspect]
  3. BENICAR [Concomitant]
     Indication: HYPERTENSION
     Dosage: 12.4 MG, 1X/DAY
     Route: 048
  4. ACETYLSALICYLIC ACID [Concomitant]
     Indication: BLOOD CHOLESTEROL ABNORMAL
     Dosage: 325 MG, 1X/DAY
     Route: 048
  5. SYNTHROID [Concomitant]
     Indication: THYROID DISORDER
     Dosage: 0.05 MG, 1X/DAY
     Route: 048

REACTIONS (1)
  - CHROMATURIA [None]
